FAERS Safety Report 25329022 (Version 1)
Quarter: 2025Q2

REPORT INFORMATION
  Report Type: Report from Study
  Country: US (occurrence: US)
  Receive Date: 20250519
  Receipt Date: 20250519
  Transmission Date: 20250716
  Serious: Yes (Disabling)
  Sender: ARDELYX
  Company Number: US-ARDELYX-2024ARDX009082

PATIENT
  Sex: Male

DRUGS (2)
  1. XPHOZAH [Suspect]
     Active Substance: TENAPANOR HYDROCHLORIDE
     Indication: Hyperphosphataemia
     Route: 048
     Dates: start: 20241216, end: 202412
  2. XPHOZAH [Suspect]
     Active Substance: TENAPANOR HYDROCHLORIDE
     Route: 048
     Dates: start: 202412, end: 20241219

REACTIONS (3)
  - Diarrhoea [Recovered/Resolved]
  - Fall [Unknown]
  - Dehydration [Unknown]

NARRATIVE: CASE EVENT DATE: 20241201
